FAERS Safety Report 25091231 (Version 1)
Quarter: 2025Q1

REPORT INFORMATION
  Report Type: Spontaneous
  Country: US (occurrence: US)
  Receive Date: 20250318
  Receipt Date: 20250318
  Transmission Date: 20250409
  Serious: Yes (Hospitalization, Other)
  Sender: BRISTOL-MYERS SQUIBB COMPANY
  Company Number: US-BRISTOL-MYERS SQUIBB COMPANY-2025-035896

PATIENT
  Age: 57 Year
  Sex: Male

DRUGS (12)
  1. REVLIMID [Suspect]
     Active Substance: LENALIDOMIDE
     Indication: Plasma cell myeloma
     Route: 048
     Dates: start: 20250223, end: 20250228
  2. CARVEDILOL [Concomitant]
     Active Substance: CARVEDILOL
  3. BIKTARVY [Concomitant]
     Active Substance: BICTEGRAVIR SODIUM\EMTRICITABINE\TENOFOVIR ALAFENAMIDE FUMARATE
  4. NITROGLYCERIN [Concomitant]
     Active Substance: NITROGLYCERIN
  5. CRESTOR [Concomitant]
     Active Substance: ROSUVASTATIN CALCIUM
  6. VITAMIN E [Concomitant]
     Active Substance: .ALPHA.-TOCOPHEROL
  7. VITAMIN D NOS [Concomitant]
     Active Substance: CHOLECALCIFEROL\ERGOCALCIFEROL
  8. CYMBALTA [Concomitant]
     Active Substance: DULOXETINE HYDROCHLORIDE
  9. HYDRALAZINE [Concomitant]
     Active Substance: HYDRALAZINE HYDROCHLORIDE
  10. TRELEGY ELLIPTA [Concomitant]
     Active Substance: FLUTICASONE FUROATE\UMECLIDINIUM BROMIDE\VILANTEROL TRIFENATATE
  11. ACYCLOVIR [Concomitant]
     Active Substance: ACYCLOVIR
  12. DEXAMETHASONE [Concomitant]
     Active Substance: DEXAMETHASONE

REACTIONS (7)
  - Chronic obstructive pulmonary disease [Unknown]
  - Bronchitis [Unknown]
  - Pneumonia [Unknown]
  - Intervertebral disc disorder [Recovered/Resolved]
  - Acute kidney injury [Unknown]
  - Hypophagia [Unknown]
  - Oesophagitis [Unknown]

NARRATIVE: CASE EVENT DATE: 20250101
